FAERS Safety Report 8094046-2 (Version None)
Quarter: 2012Q1

REPORT INFORMATION
  Report Type: 
  Country: None (occurrence: None)
  Receive Date: 20120131
  Receipt Date: 20120119
  Transmission Date: 20120608
  Serious: Yes (Other)
  Sender: FDA-Public Use
  Company Number: US-BRISTOL-MYERS SQUIBB COMPANY-16374928

PATIENT
  Age: 5 Year
  Sex: Female
  Weight: 20 kg

DRUGS (12)
  1. HYDROCORTISONE [Suspect]
     Indication: B PRECURSOR TYPE ACUTE LEUKAEMIA
     Dosage: LAST DOSE ON 12MG;27DEC2010, 24MG;16MAY2011,  ROUTE:IT
     Dates: start: 20100222
  2. PREDNISONE TAB [Suspect]
     Indication: B PRECURSOR TYPE ACUTE LEUKAEMIA
     Dosage: DOSE:150MG,LAST DOSE ON 17JUN11.150MG;1JAN11.300MG;20MAY11
     Route: 048
     Dates: start: 20100222
  3. VINCRISTINE SULFATE [Suspect]
     Indication: B PRECURSOR TYPE ACUTE LEUKAEMIA
     Dosage: DOSE:1.1MG,ALSO TAKEN ON 08MAR10,15MAR10,27DEC10(1MG),LAST DOSE ON 16MAY11,13JUN11
     Route: 042
     Dates: start: 20100222
  4. CYTARABINE [Suspect]
     Indication: B PRECURSOR TYPE ACUTE LEUKAEMIA
     Dosage: LAST DOSE ON 16MAY11
     Route: 042
     Dates: start: 20100222
  5. SPRYCEL [Suspect]
     Indication: B PRECURSOR TYPE ACUTE LEUKAEMIA
     Dosage: 630MG 26JUN11,450MG 06JAN11,1575MG 22MAY11
     Route: 048
     Dates: start: 20100222
  6. METHOTREXATE [Suspect]
     Indication: B PRECURSOR TYPE ACUTE LEUKAEMIA
     Dosage: LAST DOSE ON 27DEC2010, 16MAY11, 04JUL2011 3850MG IV,24MG IT,15MG PO
     Route: 048
     Dates: start: 20100222
  7. DEXAMETHASONE [Suspect]
     Indication: B PRECURSOR TYPE ACUTE LEUKAEMIA
     Dosage: LAST DOSE ON 29AUG2010
     Route: 048
     Dates: start: 20100222
  8. DAUNORUBICIN HCL [Suspect]
     Indication: B PRECURSOR TYPE ACUTE LEUKAEMIA
     Dosage: LAST DOSE:10AUG10
     Route: 042
     Dates: start: 20100222
  9. ONCASPAR [Suspect]
     Indication: B PRECURSOR TYPE ACUTE LEUKAEMIA
  10. ETOPOSIDE [Suspect]
     Indication: B PRECURSOR TYPE ACUTE LEUKAEMIA
     Dosage: 400MG,LAST DOSE ON 20MAY11
     Route: 042
     Dates: start: 20100222
  11. CYCLOPHOSPHAMIDE [Suspect]
     Indication: B PRECURSOR TYPE ACUTE LEUKAEMIA
     Dosage: LAST DOSE 20MAY11
     Route: 042
     Dates: start: 20100222
  12. MERCAPTOPURINE [Suspect]
     Indication: B PRECURSOR TYPE ACUTE LEUKAEMIA
     Dosage: LAST DOSE ON 06JAN2011;150MG, 07JUL11
     Route: 048
     Dates: start: 20100222

REACTIONS (2)
  - ALANINE AMINOTRANSFERASE INCREASED [None]
  - ASPARTATE AMINOTRANSFERASE INCREASED [None]
